FAERS Safety Report 6429176-1 (Version None)
Quarter: 2009Q4

REPORT INFORMATION
  Report Type: 
  Country: None (occurrence: None)
  Receive Date: 20091105
  Receipt Date: 20091029
  Transmission Date: 20100525
  Serious: Yes (Death)
  Sender: FDA-Public Use
  Company Number: DE-BAYER-200937346GPV

PATIENT
  Age: 92 Year
  Sex: Female
  Weight: 55 kg

DRUGS (4)
  1. ASPIRIN [Suspect]
     Indication: ANGINA PECTORIS
     Route: 065
     Dates: start: 20080101
  2. METOPROLOL SUCCINATE [Suspect]
     Indication: DRUG USE FOR UNKNOWN INDICATION
     Route: 048
     Dates: start: 20070101
  3. PANTOPRAZOLE SODIUM [Suspect]
     Indication: DRUG USE FOR UNKNOWN INDICATION
     Route: 048
     Dates: start: 20080101
  4. KALINOR RETARD/ POTASSIUM [Suspect]
     Indication: DRUG USE FOR UNKNOWN INDICATION
     Route: 048
     Dates: start: 20080101

REACTIONS (1)
  - MYOCARDIAL INFARCTION [None]
